FAERS Safety Report 22594325 (Version 3)
Quarter: 2023Q2

REPORT INFORMATION
  Report Type: Spontaneous
  Country: US (occurrence: US)
  Receive Date: 20230613
  Receipt Date: 20230626
  Transmission Date: 20230721
  Serious: No
  Sender: FDA-Public Use
  Company Number: US-PFIZER INC-202300215479

PATIENT
  Age: 24 Year
  Sex: Male
  Weight: 60.78 kg

DRUGS (2)
  1. GENOTROPIN [Suspect]
     Active Substance: SOMATROPIN
     Indication: Growth hormone deficiency
     Dosage: 0.2 MG, AT NIGHT
     Dates: start: 1999
  2. GENOTROPIN [Suspect]
     Active Substance: SOMATROPIN
     Dosage: UNK
     Dates: start: 1999

REACTIONS (5)
  - Drug dose omission by device [Unknown]
  - Device use issue [Unknown]
  - Device electrical finding [Unknown]
  - Device mechanical issue [Unknown]
  - Device dispensing error [Unknown]

NARRATIVE: CASE EVENT DATE: 20230606
